FAERS Safety Report 14880812 (Version 1)
Quarter: 2018Q2

REPORT INFORMATION
  Report Type: Spontaneous
  Country: US (occurrence: US)
  Receive Date: 20180425
  Receipt Date: 20180425
  Transmission Date: 20180711
  Serious: No
  Sender: FDA-Public Use
  Company Number: None

PATIENT
  Age: 66 Year
  Sex: Male

DRUGS (1)
  1. LITHIUM. [Suspect]
     Active Substance: LITHIUM
     Indication: BIPOLAR I DISORDER
     Dates: start: 20171211, end: 20180129

REACTIONS (3)
  - Gait disturbance [None]
  - Tremor [None]
  - Hypersomnia [None]

NARRATIVE: CASE EVENT DATE: 20180214
